FAERS Safety Report 10082445 (Version 2)
Quarter: 2014Q2

REPORT INFORMATION
  Report Type: Spontaneous
  Country: US (occurrence: US)
  Receive Date: 20140416
  Receipt Date: 20140502
  Transmission Date: 20141212
  Serious: Yes (Life-Threatening, Hospitalization)
  Sender: FDA-Public Use
  Company Number: US-JNJFOC-20140407608

PATIENT
  Age: 52 Year
  Sex: Male
  Weight: 99.79 kg

DRUGS (9)
  1. REMICADE [Suspect]
     Indication: RHEUMATOID ARTHRITIS
     Route: 042
     Dates: start: 20140228
  2. REMICADE [Suspect]
     Indication: RHEUMATOID ARTHRITIS
     Route: 042
     Dates: start: 20140313, end: 20140313
  3. BENADRYL [Suspect]
     Indication: PREMEDICATION
     Route: 065
     Dates: start: 20140313, end: 2014
  4. FOLIC ACID [Concomitant]
     Route: 048
  5. BENICAR [Concomitant]
     Indication: HYPERTENSION
     Route: 048
  6. HCTZ [Concomitant]
     Route: 048
  7. METHOTREXATE [Concomitant]
     Route: 048
  8. PLAQUENIL [Concomitant]
     Route: 048
  9. IBUPROFEN [Concomitant]
     Route: 048

REACTIONS (5)
  - Infusion related reaction [Recovered/Resolved]
  - Anaphylactic reaction [Recovered/Resolved]
  - Rash maculo-papular [Recovered/Resolved]
  - Blood alkaline phosphatase increased [Unknown]
  - Rash [Recovered/Resolved]
